FAERS Safety Report 8880797 (Version 1)
Quarter: 2012Q4

REPORT INFORMATION
  Report Type: 
  Country: US (occurrence: US)
  Receive Date: 20121101
  Receipt Date: 20121101
  Transmission Date: 20130627
  Serious: Yes (Other)
  Sender: FDA-Public Use
  Company Number: US-BAYER-2012-113122

PATIENT
  Age: 51 Year
  Sex: Female
  Weight: 45 kg

DRUGS (6)
  1. ALEVE CAPLET/TABLET,MIDOL EXTENDED RELIEF CAPLET [Suspect]
     Indication: HEADACHE
     Dosage: UNK
     Dates: start: 200908, end: 201004
  2. REBIF [Suspect]
     Indication: MULTIPLE SCLEROSIS
     Dosage: 22 ?g, TIW
     Route: 058
     Dates: start: 20090805, end: 201004
  3. EXCEDRIN (ACETYLSALICYLIC ACID, CAFFEINE  AND ACETAMINOPHEN) [Suspect]
     Indication: HEADACHE
     Dosage: UNK
     Dates: start: 200908, end: 201004
  4. ZETIA [Concomitant]
     Dosage: UNK
  5. SYNTHROID [Concomitant]
     Indication: HYPOTHYROIDISM
     Dosage: UNK
  6. PREMARIN [Concomitant]
     Indication: HYSTERECTOMY
     Dosage: UNK

REACTIONS (2)
  - Gastric ulcer haemorrhage [Recovering/Resolving]
  - Anaemia [Recovering/Resolving]
